FAERS Safety Report 6806979-2 (Version None)
Quarter: 2010Q2

REPORT INFORMATION
  Report Type: 
  Country: None (occurrence: None)
  Receive Date: 20100629
  Receipt Date: 20080530
  Transmission Date: 20101027
  Serious: No
  Sender: FDA-Public Use
  Company Number: US-PFIZER INC-2008046139

PATIENT
  Sex: Male

DRUGS (3)
  1. XANAX [Suspect]
     Indication: DYSPEPSIA
     Route: 048
     Dates: start: 20080430, end: 20080514
  2. GLUTATHIONE [Interacting]
     Indication: DETOXIFICATION
     Route: 042
     Dates: start: 20070101, end: 20080514
  3. OMEPRAZOLE [Concomitant]

REACTIONS (3)
  - DRUG INTERACTION [None]
  - HEADACHE [None]
  - TENSION HEADACHE [None]
